FAERS Safety Report 5233072-5 (Version None)
Quarter: 2007Q1

REPORT INFORMATION
  Report Type: 
  Country: None (occurrence: None)
  Receive Date: 20070207
  Receipt Date: 20070126
  Transmission Date: 20070707
  Serious: Yes (Hospitalization, Other)
  Sender: FDA-Public Use
  Company Number: US-PFIZER INC-2006108503

PATIENT
  Sex: Male
  Weight: 90.7 kg

DRUGS (2)
  1. BEXTRA [Suspect]
     Indication: ROTATOR CUFF REPAIR
     Route: 048
  2. BEXTRA [Suspect]
     Indication: INTERVERTEBRAL DISC OPERATION

REACTIONS (3)
  - CARDIAC DISORDER [None]
  - MAJOR DEPRESSION [None]
  - MYOCARDIAL INFARCTION [None]
